FAERS Safety Report 12880576 (Version 3)
Quarter: 2016Q4

REPORT INFORMATION
  Report Type: Report from Study
  Country: DE (occurrence: DE)
  Receive Date: 20161025
  Receipt Date: 20161221
  Transmission Date: 20170207
  Serious: Yes (Hospitalization, Other)
  Sender: FDA-Public Use
  Company Number: DE-ROCHE-1815494

PATIENT
  Sex: Female
  Weight: 66 kg

DRUGS (1)
  1. ESBRIET [Suspect]
     Active Substance: PIRFENIDONE
     Indication: IDIOPATHIC PULMONARY FIBROSIS
     Route: 048
     Dates: start: 20151111

REACTIONS (6)
  - Haemoptysis [Recovering/Resolving]
  - Bronchitis [Recovering/Resolving]
  - Blood urine present [Recovering/Resolving]
  - Haemorrhagic anaemia [Not Recovered/Not Resolved]
  - Ulcer [Unknown]
  - Urinary tract infection [Recovering/Resolving]

NARRATIVE: CASE EVENT DATE: 20160802
